FAERS Safety Report 11248813 (Version 1)
Quarter: 2015Q3

REPORT INFORMATION
  Report Type: Spontaneous
  Country: US (occurrence: US)
  Receive Date: 20150708
  Receipt Date: 20150708
  Transmission Date: 20151125
  Serious: No
  Sender: FDA-Public Use
  Company Number: US-ELI_LILLY_AND_COMPANY-US201012002290

PATIENT
  Age: 71 Year
  Sex: Female

DRUGS (2)
  1. FLUOXETINE HYDROCHLORIDE. [Suspect]
     Active Substance: FLUOXETINE HYDROCHLORIDE
     Indication: DEPRESSION
     Dates: start: 201009
  2. PROZAC WEEKLY [Suspect]
     Active Substance: FLUOXETINE HYDROCHLORIDE
     Indication: DEPRESSION
     Dosage: 90 MG, WEEKLY (1/W)
     Dates: start: 2000, end: 201009

REACTIONS (7)
  - Weight increased [Unknown]
  - Disturbance in attention [Unknown]
  - Nausea [Unknown]
  - Feeling abnormal [Unknown]
  - Fatigue [Unknown]
  - Prescribed overdose [Unknown]
  - Hypersomnia [Unknown]

NARRATIVE: CASE EVENT DATE: 2010
